FAERS Safety Report 9119703 (Version 3)
Quarter: 2013Q2

REPORT INFORMATION
  Report Type: Spontaneous
  Country: US (occurrence: US)
  Receive Date: 20130226
  Receipt Date: 20130513
  Transmission Date: 20140414
  Serious: No
  Sender: FDA-Public Use
  Company Number: US-ASTRAZENECA-2013SE05661

PATIENT
  Age: 50 Year
  Sex: Female
  Weight: 74.8 kg

DRUGS (3)
  1. NEXIUM [Suspect]
     Indication: GASTROOESOPHAGEAL REFLUX DISEASE
     Route: 048
     Dates: start: 201301
  2. XANAX [Concomitant]
     Indication: PANIC ATTACK
  3. OXYCODONE [Concomitant]
     Indication: PAIN

REACTIONS (10)
  - Aphagia [Unknown]
  - Dyspepsia [Unknown]
  - Sleep disorder [Unknown]
  - Hyperchlorhydria [Unknown]
  - Nausea [Unknown]
  - Abdominal pain [Unknown]
  - Abdominal pain upper [Unknown]
  - Off label use [Unknown]
  - Intentional drug misuse [Unknown]
  - Drug dose omission [Unknown]
